FAERS Safety Report 6491746-2 (Version None)
Quarter: 2009Q4

REPORT INFORMATION
  Report Type: 
  Country: None (occurrence: None)
  Receive Date: 20091208
  Receipt Date: 20091126
  Transmission Date: 20100525
  Serious: Yes (Life-Threatening)
  Sender: FDA-Public Use
  Company Number: 2009AL007042

PATIENT
  Age: 92 Year
  Sex: Female

DRUGS (6)
  1. GABAPENTIN [Suspect]
     Indication: NEURALGIA
     Dosage: 300 MG;QD
     Dates: start: 20091020, end: 20091020
  2. HJERTEMAGNYL [Concomitant]
  3. NITRAZEPAM [Concomitant]
  4. AMLODIPINE [Concomitant]
  5. MATRIFEN [Concomitant]
  6. MULTI-VITAMIN [Concomitant]

REACTIONS (5)
  - DISCOMFORT [None]
  - GENERALISED OEDEMA [None]
  - HYPERSENSITIVITY [None]
  - MALAISE [None]
  - MUSCULOSKELETAL STIFFNESS [None]
